FAERS Safety Report 22599557 (Version 1)
Quarter: 2023Q2

REPORT INFORMATION
  Report Type: Spontaneous
  Country: GB (occurrence: None)
  Receive Date: 20230614
  Receipt Date: 20230614
  Transmission Date: 20230722
  Serious: Yes (Other)
  Sender: FDA-Public Use
  Company Number: 2023A133641

PATIENT
  Age: 79 Year
  Sex: Female

DRUGS (1)
  1. BENRALIZUMAB [Suspect]
     Active Substance: BENRALIZUMAB
     Indication: Dyspnoea
     Route: 058
     Dates: start: 20230530

REACTIONS (6)
  - Syncope [Not Recovered/Not Resolved]
  - Dizziness [Unknown]
  - Dizziness [Unknown]
  - Fall [Unknown]
  - Urticaria [Unknown]
  - Headache [Unknown]

NARRATIVE: CASE EVENT DATE: 20230530
